FAERS Safety Report 16221053 (Version 1)
Quarter: 2019Q2

REPORT INFORMATION
  Report Type: Report from Study
  Country: None (occurrence: US)
  Receive Date: 20190421
  Receipt Date: 20190421
  Transmission Date: 20190711
  Serious: Yes (Hospitalization)
  Sender: FDA-Public Use
  Company Number: US-ABBVIE-19K-163-2749322-00

PATIENT
  Sex: Female

DRUGS (1)
  1. HUMIRA [Suspect]
     Active Substance: ADALIMUMAB
     Indication: RHEUMATOID ARTHRITIS
     Route: 058

REACTIONS (5)
  - Pain in extremity [Unknown]
  - Weight decreased [Recovering/Resolving]
  - Fibromyalgia [Not Recovered/Not Resolved]
  - Peripheral swelling [Recovering/Resolving]
  - Rheumatoid arthritis [Unknown]
